FAERS Safety Report 13358047 (Version 2)
Quarter: 2017Q1

REPORT INFORMATION
  Report Type: Other
  Country: CH (occurrence: CH)
  Receive Date: 20170322
  Receipt Date: 20170328
  Transmission Date: 20170429
  Serious: Yes (Hospitalization)
  Sender: FDA-Public Use
  Company Number: CH-SHIRE-CH201706302

PATIENT
  Sex: Male

DRUGS (2)
  1. FENTANYL                           /00174602/ [Suspect]
     Active Substance: FENTANYL
     Indication: BACK PAIN
     Dosage: UNK, UNKNOWN
     Route: 062
  2. REVESTIVE [Suspect]
     Active Substance: TEDUGLUTIDE
     Indication: SHORT-BOWEL SYNDROME
     Dosage: 0.05 MG/KG, 1X/DAY:QD
     Route: 058

REACTIONS (4)
  - Malaise [Unknown]
  - Oedema [Unknown]
  - Drug interaction [Unknown]
  - Dyspnoea [Unknown]
